FAERS Safety Report 20804564 (Version 1)
Quarter: 2022Q2

REPORT INFORMATION
  Report Type: Spontaneous
  Country: US (occurrence: US)
  Receive Date: 20220509
  Receipt Date: 20220509
  Transmission Date: 20220720
  Serious: Yes (Hospitalization)
  Sender: FDA-Public Use
  Company Number: US-AMNEAL PHARMACEUTICALS-2022-AMRX-01202

PATIENT
  Age: 0 Year
  Sex: Male
  Weight: 6.667 kg

DRUGS (2)
  1. VIGABATRIN [Suspect]
     Active Substance: VIGABATRIN
     Indication: Product used for unknown indication
     Dosage: 4 ML 2 TIMES IN DAY FOR 3 DAYS, 8 ML 2 TIMES IN DAY FOR NEXT 3 DAYS, 12 ML 2 TIMES IN DAY FOR NEXT 3
     Route: 048
  2. SYNAGIS [Concomitant]
     Active Substance: PALIVIZUMAB
     Indication: Double outlet right ventricle
     Dosage: UNK, 1 /MONTH
     Route: 065

REACTIONS (1)
  - Adverse event [Unknown]

NARRATIVE: CASE EVENT DATE: 20220428
